FAERS Safety Report 10183827 (Version 1)
Quarter: 2014Q2

REPORT INFORMATION
  Report Type: Spontaneous
  Country: CN (occurrence: CN)
  Receive Date: 20140520
  Receipt Date: 20140520
  Transmission Date: 20141212
  Serious: Yes (Other)
  Sender: FDA-Public Use
  Company Number: CN-ASTRAZENECA-2014SE33365

PATIENT
  Sex: Male
  Weight: 75 kg

DRUGS (4)
  1. GOSERELIN ACETATE [Suspect]
     Indication: PROSTATE CANCER
     Route: 058
     Dates: start: 20120801, end: 20120801
  2. GOSERELIN ACETATE [Suspect]
     Indication: PROSTATE CANCER
     Route: 058
     Dates: start: 20120913, end: 20120913
  3. GOSERELIN ACETATE [Suspect]
     Indication: PROSTATE CANCER
     Route: 058
     Dates: start: 20121108
  4. ENDOCRINE THERAPY [Concomitant]
     Indication: PROSTATE CANCER METASTATIC

REACTIONS (1)
  - Liver function test abnormal [Recovering/Resolving]
